FAERS Safety Report 25469068 (Version 2)
Quarter: 2025Q3

REPORT INFORMATION
  Report Type: Spontaneous
  Country: US (occurrence: US)
  Receive Date: 20250623
  Receipt Date: 20250702
  Transmission Date: 20251021
  Serious: No
  Sender: PURDUE
  Company Number: US-PURDUE PHARMA-USA-2025-0318279

PATIENT
  Age: 58 Year
  Sex: Female
  Weight: 102.06 kg

DRUGS (2)
  1. BUTRANS [Suspect]
     Active Substance: BUPRENORPHINE
     Indication: Pain
     Route: 062
     Dates: start: 20250512, end: 20250608
  2. BUTRANS [Suspect]
     Active Substance: BUPRENORPHINE
     Indication: Neuropathy peripheral
     Route: 062
     Dates: start: 20250613

REACTIONS (9)
  - Drug screen negative [Recovered/Resolved]
  - Illness [Recovered/Resolved]
  - Application site erythema [Recovered/Resolved]
  - Application site rash [Recovered/Resolved]
  - Vomiting [Recovered/Resolved]
  - Inadequate analgesia [Recovered/Resolved]
  - Product administered at inappropriate site [Recovered/Resolved]
  - Product quality issue [Recovered/Resolved]
  - Drug withdrawal syndrome [Recovered/Resolved]

NARRATIVE: CASE EVENT DATE: 20250512
